FAERS Safety Report 24365205 (Version 4)
Quarter: 2025Q1

REPORT INFORMATION
  Report Type: Spontaneous
  Country: US (occurrence: US)
  Receive Date: 20240926
  Receipt Date: 20250116
  Transmission Date: 20250409
  Serious: Yes (Hospitalization, Other)
  Sender: BRISTOL-MYERS SQUIBB COMPANY
  Company Number: US-BRISTOL-MYERS SQUIBB COMPANY-2024-151063

PATIENT
  Age: 64 Year
  Sex: Female

DRUGS (3)
  1. POMALYST [Suspect]
     Active Substance: POMALIDOMIDE
     Indication: Monoclonal gammopathy
     Dosage: FREQUENCY: TAKE 1 CAPSULE WHOLE BY MOUTH WITH WATER, W/ OR W/O FOOD, AT ABOUT SAME TIME DAILY ON DAY
     Route: 048
  2. POMALYST [Suspect]
     Active Substance: POMALIDOMIDE
  3. POMALYST [Suspect]
     Active Substance: POMALIDOMIDE
     Dosage: TAKE 1 WHOLE CAPSULE BY MOUTH WITH WATER W/ OR W/O FOOD AT THE SAME TIME  EVERY DAY ON DAYS 1-21 OF
     Route: 048

REACTIONS (9)
  - Influenza [Recovered/Resolved]
  - Red blood cell count decreased [Recovered/Resolved]
  - White blood cell count decreased [Recovered/Resolved]
  - Dizziness [Unknown]
  - Nausea [Unknown]
  - Rash [Recovered/Resolved]
  - Off label use [Unknown]
  - Drug ineffective [Recovered/Resolved]
  - Pain in extremity [Not Recovered/Not Resolved]

NARRATIVE: CASE EVENT DATE: 20240911
